FAERS Safety Report 8842518 (Version 1)
Quarter: 2012Q4

REPORT INFORMATION
  Report Type: 
  Country: US (occurrence: US)
  Receive Date: 20121016
  Receipt Date: 20121016
  Transmission Date: 20130627
  Serious: No
  Sender: FDA-Public Use
  Company Number: US-PFIZER INC-2012253103

PATIENT
  Age: 74 Year
  Sex: Female

DRUGS (17)
  1. CLINDAMYCIN HCL [Suspect]
     Dosage: UNK
  2. DIFLUCAN [Suspect]
     Dosage: UNK
  3. IBUPROFEN [Suspect]
     Dosage: UNK
  4. METHOCARBAMOL [Suspect]
     Dosage: UNK
  5. NAPROXEN SODIUM [Suspect]
     Dosage: UNK
  6. PREMARIN [Suspect]
     Dosage: UNK
  7. MORPHINE SULFATE [Suspect]
     Dosage: UNK
  8. ADVAIR DISKUS [Suspect]
     Dosage: UNK
  9. BARIUM SULFATE [Suspect]
     Dosage: UNK
  10. HYDROMORPHONE HCL [Suspect]
     Dosage: UNK
  11. KEFLEX [Suspect]
     Dosage: UNK
  12. MACROBID [Suspect]
     Dosage: UNK
  13. PERCOCET [Suspect]
     Dosage: UNK
  14. FLEET PHOSPHO-SODA [Suspect]
     Dosage: UNK
  15. TYLENOL W/CODEINE NO. 3 [Suspect]
     Dosage: UNK
  16. ERYTHROMYCIN [Suspect]
  17. TETRACYCLINE [Suspect]

REACTIONS (1)
  - Drug hypersensitivity [Unknown]
